FAERS Safety Report 10669565 (Version 1)
Quarter: 2014Q4

REPORT INFORMATION
  Report Type: Spontaneous
  Country: US (occurrence: US)
  Receive Date: 20141222
  Receipt Date: 20141222
  Transmission Date: 20150529
  Serious: No
  Sender: FDA-Public Use
  Company Number: US-SA-2014SA165046

PATIENT
  Age: 68 Year
  Sex: Female

DRUGS (9)
  1. AUBAGIO [Suspect]
     Active Substance: TERIFLUNOMIDE
     Indication: MULTIPLE SCLEROSIS
     Route: 048
     Dates: start: 201405
  2. AMPYRA [Concomitant]
     Active Substance: DALFAMPRIDINE
     Dosage: STRENGTH: 10 MG
  3. FORTEO [Concomitant]
     Active Substance: TERIPARATIDE
     Dosage: STRENGHT: 20 MCG
  4. ASPIRIN. [Concomitant]
     Active Substance: ASPIRIN
  5. ZOFRAN [Concomitant]
     Active Substance: ONDANSETRON HYDROCHLORIDE
  6. EFFEXOR XR [Concomitant]
     Active Substance: VENLAFAXINE HYDROCHLORIDE
     Dosage: STRENGTH: 150 MG
  7. LIPITOR [Concomitant]
     Active Substance: ATORVASTATIN CALCIUM
     Dosage: STRENGTH 40 MG
  8. NEURONTIN [Concomitant]
     Active Substance: GABAPENTIN
     Dosage: STRENGTH: 300 MG
  9. KLOR-CON [Concomitant]
     Active Substance: POTASSIUM CHLORIDE
     Dosage: STRENGTH: 20 MEQ

REACTIONS (1)
  - Nausea [Unknown]

NARRATIVE: CASE EVENT DATE: 201405
